FAERS Safety Report 20132560 (Version 2)
Quarter: 2022Q1

REPORT INFORMATION
  Report Type: Spontaneous
  Country: FR (occurrence: FR)
  Receive Date: 20211130
  Receipt Date: 20220112
  Transmission Date: 20220424
  Serious: Yes (Other)
  Sender: FDA-Public Use
  Company Number: FR-GRUNENTHAL-2021-271969

PATIENT
  Sex: Female

DRUGS (1)
  1. QUTENZA [Suspect]
     Active Substance: CAPSAICIN
     Indication: Procedural pain
     Dosage: 1 DOSAGE FORM
     Route: 061
     Dates: start: 202107, end: 202107

REACTIONS (1)
  - Application site burn [Recovered/Resolved with Sequelae]

NARRATIVE: CASE EVENT DATE: 20210701
